FAERS Safety Report 5202639-2 (Version None)
Quarter: 2006Q4

REPORT INFORMATION
  Report Type: 
  Country: None (occurrence: None)
  Receive Date: 20061018
  Receipt Date: 20050803
  Transmission Date: 20070319
  Serious: Yes (Other)
  Sender: FDA-Public Use
  Company Number: PHEH2005US08606

PATIENT
  Age: 66 Year
  Sex: Female

DRUGS (1)
  1. ZOMETA [Suspect]
     Indication: OSTEOPENIA
     Dosage: ONCE/SINGLE
     Dates: start: 20050510, end: 20050510

REACTIONS (10)
  - ARTHRALGIA [None]
  - CHILLS [None]
  - DEPRESSION [None]
  - JOINT SWELLING [None]
  - NEURALGIA [None]
  - OEDEMA PERIPHERAL [None]
  - PAIN [None]
  - PAIN IN JAW [None]
  - PYREXIA [None]
  - VOMITING [None]
